FAERS Safety Report 21817264 (Version 1)
Quarter: 2023Q1

REPORT INFORMATION
  Report Type: Spontaneous
  Country: US (occurrence: US)
  Receive Date: 20230104
  Receipt Date: 20230104
  Transmission Date: 20230417
  Serious: Yes (Hospitalization, Other)
  Sender: FDA-Public Use
  Company Number: US-SUNOVION-2022SUN003536AA

PATIENT
  Age: 19 Year
  Sex: Female

DRUGS (1)
  1. LATUDA [Suspect]
     Active Substance: LURASIDONE HYDROCHLORIDE
     Indication: Bipolar disorder
     Dosage: 20 MG
     Route: 048

REACTIONS (21)
  - Maternal exposure during pregnancy [Unknown]
  - Bipolar disorder [Not Recovered/Not Resolved]
  - Seizure [Not Recovered/Not Resolved]
  - Syncope [Unknown]
  - Anger [Not Recovered/Not Resolved]
  - Drug interaction [Unknown]
  - Chest pain [Unknown]
  - Heart rate irregular [Unknown]
  - Swelling face [Unknown]
  - Peripheral swelling [Unknown]
  - Paraesthesia oral [Unknown]
  - Pharyngeal paraesthesia [Unknown]
  - Chest discomfort [Unknown]
  - Feeling hot [Unknown]
  - Dysphagia [Unknown]
  - Muscle twitching [Unknown]
  - Fatigue [Not Recovered/Not Resolved]
  - Anxiety [Not Recovered/Not Resolved]
  - Insomnia [Not Recovered/Not Resolved]
  - Pruritus [Unknown]
  - Dyspnoea [Unknown]

NARRATIVE: CASE EVENT DATE: 20221227
